FAERS Safety Report 6838695-5 (Version None)
Quarter: 2010Q3

REPORT INFORMATION
  Report Type: 
  Country: None (occurrence: None)
  Receive Date: 20100713
  Receipt Date: 20070620
  Transmission Date: 20110219
  Serious: Yes (Other)
  Sender: FDA-Public Use
  Company Number: US-PFIZER INC-2007035066

PATIENT
  Sex: Female
  Weight: 84.09 kg

DRUGS (7)
  1. CHANTIX [Suspect]
     Indication: SMOKING CESSATION THERAPY
     Route: 048
     Dates: start: 20070129
  2. TRAZODONE HYDROCHLORIDE [Concomitant]
  3. RISPERDAL [Concomitant]
  4. TONOCARD [Concomitant]
  5. BUSPAR [Concomitant]
  6. VITAMIN E [Concomitant]
  7. SERTRALINE HCL [Concomitant]

REACTIONS (9)
  - ABNORMAL DREAMS [None]
  - DIZZINESS [None]
  - DYSGEUSIA [None]
  - GLOSSODYNIA [None]
  - HALLUCINATION, AUDITORY [None]
  - HEAD DISCOMFORT [None]
  - HEADACHE [None]
  - MALAISE [None]
  - VISION BLURRED [None]
